FAERS Safety Report 6369237-9 (Version None)
Quarter: 2009Q3

REPORT INFORMATION
  Report Type: 
  Country: None (occurrence: None)
  Receive Date: 20090916
  Receipt Date: 20090908
  Transmission Date: 20100115
  Serious: Yes (Other)
  Sender: FDA-Public Use
  Company Number: ADR19702009

PATIENT
  Sex: Female

DRUGS (1)
  1. SERTRALINE HCL [Suspect]

REACTIONS (2)
  - DRUG WITHDRAWAL SYNDROME [None]
  - EPILEPSY [None]
